FAERS Safety Report 24192754 (Version 2)
Quarter: 2024Q3

REPORT INFORMATION
  Report Type: Other
  Country: US (occurrence: US)
  Receive Date: 20240809
  Receipt Date: 20240911
  Transmission Date: 20241017
  Serious: No
  Sender: APOTEX
  Company Number: US-APOTEX-2024AP008985

PATIENT
  Sex: Male

DRUGS (1)
  1. LENALIDOMIDE [Suspect]
     Active Substance: LENALIDOMIDE
     Indication: Plasma cell myeloma
     Dosage: UNK
     Route: 065
     Dates: start: 202404

REACTIONS (5)
  - Sleep disorder [Unknown]
  - Therapeutic response changed [Unknown]
  - Product substitution issue [Unknown]
  - Asthenia [Unknown]
  - Arthralgia [Unknown]

NARRATIVE: CASE EVENT DATE: 20240101
